FAERS Safety Report 18949170 (Version 1)
Quarter: 2021Q1

REPORT INFORMATION
  Report Type: Spontaneous
  Country: US (occurrence: US)
  Receive Date: 20210227
  Receipt Date: 20210227
  Transmission Date: 20210420
  Serious: No
  Sender: FDA-Public Use
  Company Number: US-ROCHE-2641010

PATIENT
  Age: 24 Year
  Sex: Female

DRUGS (1)
  1. XOLAIR [Suspect]
     Active Substance: OMALIZUMAB
     Indication: ASTHMA
     Dosage: THERAPY ONGOING AT THE TIME OF EVENT
     Route: 058
     Dates: start: 20200609, end: 20200629

REACTIONS (3)
  - Urticaria [Recovered/Resolved]
  - Swelling of eyelid [Unknown]
  - Lip swelling [Unknown]

NARRATIVE: CASE EVENT DATE: 20200609
